FAERS Safety Report 15334527 (Version 2)
Quarter: 2018Q3

REPORT INFORMATION
  Report Type: Spontaneous
  Country: DE (occurrence: DE)
  Receive Date: 20180830
  Receipt Date: 20180918
  Transmission Date: 20181010
  Serious: Yes (Other)
  Sender: FDA-Public Use
  Company Number: DE-PFIZER INC-2018345348

PATIENT
  Age: 51 Year
  Sex: Female

DRUGS (5)
  1. UPTRAVI [Concomitant]
     Active Substance: SELEXIPAG
     Dosage: 0.5 DF, 2X/DAY, 0.5?0?0.5
     Dates: start: 201702
  2. OPSUMIT [Concomitant]
     Active Substance: MACITENTAN
     Dosage: 1 DF, 1X/DAY, 1?0?0
     Dates: start: 201508
  3. PROVAS [VALSARTAN] [Concomitant]
     Dosage: 0.5 DF, 1X/DAY, 0.5?0??0, FOR 10 YEARS
  4. BELOC ZOK [Concomitant]
     Active Substance: METOPROLOL SUCCINATE
     Dosage: 0.5 DF, 1X/DAY, 0?0?0.5, FOR 10 YEARS
  5. REVATIO [Suspect]
     Active Substance: SILDENAFIL CITRATE
     Indication: PULMONARY HYPERTENSION
     Dosage: 20 MG, 3X/DAY
     Dates: start: 201508

REACTIONS (1)
  - Stress fracture [Not Recovered/Not Resolved]

NARRATIVE: CASE EVENT DATE: 201606
